FAERS Safety Report 21457099 (Version 1)
Quarter: 2022Q4

REPORT INFORMATION
  Report Type: Report from Study
  Country: US (occurrence: US)
  Receive Date: 20221014
  Receipt Date: 20221014
  Transmission Date: 20230112
  Serious: Yes (Hospitalization)
  Sender: FDA-Public Use
  Company Number: US-TAKEDA-2022TUS022862

PATIENT
  Sex: Female

DRUGS (1)
  1. VEDOLIZUMAB [Suspect]
     Active Substance: VEDOLIZUMAB
     Indication: Colitis ulcerative
     Dosage: 300 MILLIGRAM
     Route: 042

REACTIONS (9)
  - Hospitalisation [Unknown]
  - Memory impairment [Unknown]
  - Illness [Unknown]
  - Limb discomfort [Unknown]
  - Gastric disorder [Unknown]
  - Retching [Unknown]
  - Infection [Unknown]
  - Vomiting [Unknown]
  - Dyspepsia [Unknown]
